FAERS Safety Report 9285697 (Version 1)
Quarter: 2013Q2

REPORT INFORMATION
  Report Type: Spontaneous
  Country: US (occurrence: US)
  Receive Date: 20130513
  Receipt Date: 20130513
  Transmission Date: 20140414
  Serious: Yes (Hospitalization, Other)
  Sender: FDA-Public Use
  Company Number: US-SANOFI-AVENTIS-2013SA047475

PATIENT
  Sex: Male

DRUGS (4)
  1. LANTUS SOLOSTAR [Suspect]
     Dosage: THERAPY START DATE - 2 YEARS DOSE:20 UNIT(S)
     Route: 051
  2. LANTUS SOLOSTAR [Suspect]
     Route: 051
  3. SOLOSTAR [Suspect]
     Dosage: THERAPY START DATE - 2 YEARS
  4. SOLOSTAR [Suspect]

REACTIONS (2)
  - Neoplasm malignant [Unknown]
  - Pneumonia [Unknown]
